FAERS Safety Report 21839733 (Version 2)
Quarter: 2023Q1

REPORT INFORMATION
  Report Type: Report from Study
  Country: US (occurrence: US)
  Receive Date: 20230109
  Receipt Date: 20230120
  Transmission Date: 20230417
  Serious: Yes (Hospitalization)
  Sender: FDA-Public Use
  Company Number: US-ABBVIE-4261393

PATIENT
  Age: 50 Year
  Sex: Male
  Weight: 64 kg

DRUGS (3)
  1. HUMIRA [Suspect]
     Active Substance: ADALIMUMAB
     Indication: Crohn^s disease
     Route: 058
     Dates: start: 20220831, end: 202301
  2. GANCICLOVIR [Concomitant]
     Active Substance: GANCICLOVIR
     Indication: Crohn^s disease
     Dates: start: 20230105
  3. MONTELUKAST [Concomitant]
     Active Substance: MONTELUKAST SODIUM
     Indication: Hypersensitivity

REACTIONS (3)
  - Crohn^s disease [Recovered/Resolved]
  - Therapeutic product effect decreased [Not Recovered/Not Resolved]
  - Haemorrhage [Recovered/Resolved]

NARRATIVE: CASE EVENT DATE: 20221101
